FAERS Safety Report 14824946 (Version 2)
Quarter: 2018Q2

REPORT INFORMATION
  Report Type: Report from Study
  Country: GB (occurrence: GB)
  Receive Date: 20180430
  Receipt Date: 20180520
  Transmission Date: 20180711
  Serious: Yes (Other)
  Sender: FDA-Public Use
  Company Number: GB-UCBSA-2018018461

PATIENT
  Age: 48 Year
  Sex: Female

DRUGS (1)
  1. CERTOLIZUMAB PEGOL RA AUTOCLICKS [Suspect]
     Active Substance: CERTOLIZUMAB PEGOL
     Indication: RHEUMATOID ARTHRITIS
     Dosage: 400 MG, EV 2 WEEKS(QOW)
     Route: 058
     Dates: start: 20180418, end: 20180512

REACTIONS (4)
  - Mouth swelling [Unknown]
  - Drug hypersensitivity [Unknown]
  - Mass [Unknown]
  - Lip swelling [Unknown]

NARRATIVE: CASE EVENT DATE: 20180418
